FAERS Safety Report 7979033-4 (Version None)
Quarter: 2011Q4

REPORT INFORMATION
  Report Type: 
  Country: None (occurrence: None)
  Receive Date: 20111214
  Receipt Date: 20111212
  Transmission Date: 20120403
  Serious: No
  Sender: FDA-Public Use
  Company Number: US-PFIZER INC-2011301784

PATIENT
  Sex: Male
  Weight: 102 kg

DRUGS (2)
  1. ADVIL COLD AND SINUS [Suspect]
     Indication: SINUSITIS
     Dosage: UNK, AS NEEDED
     Route: 048
     Dates: start: 20111211, end: 20111211
  2. ADVIL COLD AND SINUS [Suspect]
     Indication: NASAL CONGESTION

REACTIONS (7)
  - DIZZINESS [None]
  - NERVOUSNESS [None]
  - HEADACHE [None]
  - INFLUENZA [None]
  - ANXIETY [None]
  - NASOPHARYNGITIS [None]
  - DYSPNOEA [None]
